FAERS Safety Report 4322388-2 (Version None)
Quarter: 2004Q1

REPORT INFORMATION
  Report Type: 
  Country: None (occurrence: None)
  Receive Date: 20040319
  Receipt Date: 20040310
  Transmission Date: 20041129
  Serious: Yes (Hospitalization)
  Sender: FDA-Public Use
  Company Number: FR-JNJFOC-20040303015

PATIENT
  Age: 75 Year
  Sex: Male

DRUGS (12)
  1. ABCIXIMAB - BLINDED (ABCIXIMAB) INJECTION [Suspect]
     Indication: ANGIOPLASTY
     Dosage: SEE IMAGE
     Route: 042
     Dates: start: 20031105, end: 20031105
  2. ABCIXIMAB - BLINDED (ABCIXIMAB) INJECTION [Suspect]
     Indication: ANGIOPLASTY
     Dosage: SEE IMAGE
     Route: 042
     Dates: start: 20031105, end: 20031105
  3. PLACEBO (PLACEBO) INJECTION [Suspect]
     Indication: ANGIOPLASTY
     Dosage: SEE IMAGE
     Route: 042
     Dates: start: 20031105, end: 20031105
  4. ADANCOR (NICORANDIL) [Concomitant]
  5. IKOREL (NICORANDIL) [Concomitant]
  6. CORVASAL (MOLSIDOMINE) [Concomitant]
  7. SOPROL (BISOPROLOL FUMARATE) [Concomitant]
  8. RAMIPRIL [Concomitant]
  9. HYPERIUM (RILMENIDINE) [Concomitant]
  10. PLAVIX [Concomitant]
  11. KARDEGIC (ACETYLSALICYLATE LYSINE) [Concomitant]
  12. ZOCOR [Concomitant]

REACTIONS (2)
  - DRUG INTERACTION [None]
  - ILIAC ARTERY STENOSIS [None]
